FAERS Safety Report 13502805 (Version 6)
Quarter: 2020Q3

REPORT INFORMATION
  Report Type: Report from Study
  Country: JP (occurrence: JP)
  Receive Date: 20170502
  Receipt Date: 20200701
  Transmission Date: 20201102
  Serious: Yes (Other)
  Sender: FDA-Public Use
  Company Number: JP-VIIV HEALTHCARE LIMITED-JP2017JPN062760

PATIENT
  Age: 5 Decade
  Sex: Male

DRUGS (10)
  1. EPZICOM [Suspect]
     Active Substance: ABACAVIR SULFATE\LAMIVUDINE
     Indication: HIV INFECTION
     Dosage: 1 DF, 1D
     Route: 048
     Dates: start: 20150811, end: 20161115
  2. ISENTRESS [Concomitant]
     Active Substance: RALTEGRAVIR POTASSIUM
     Indication: HIV INFECTION
     Dosage: 400 MG, BID
     Dates: start: 20150811, end: 20161115
  3. PREZCOBIX [Concomitant]
     Active Substance: COBICISTAT\DARUNAVIR ETHANOLATE
     Indication: HIV INFECTION
     Dosage: 1 DF, 1D
     Dates: start: 20170502
  4. ABACAVIRSULPHATE+DOLUTEGRAVIR+LAMIVUDINE [Suspect]
     Active Substance: ABACAVIR SULFATE\DOLUTEGRAVIR SODIUM\LAMIVUDINE
     Indication: HIV INFECTION
     Dosage: 1 DF, 1D
     Route: 048
     Dates: start: 20161116
  5. BACTRAMIN [Concomitant]
     Active Substance: SULFAMETHOXAZOLE\TRIMETHOPRIM
     Indication: ANTIFUNGAL PROPHYLAXIS
     Dosage: 1 DF, QD
  6. BENZALIN TABLETS [Concomitant]
     Indication: HIV-ASSOCIATED NEUROCOGNITIVE DISORDER
     Dosage: 5 MG, QD
  7. PREZISTANAIVE [Concomitant]
     Active Substance: DARUNAVIR
     Indication: HIV INFECTION
     Dosage: 800 MG, QD
     Dates: start: 20161116, end: 20170502
  8. DEPAKENE [Concomitant]
     Active Substance: VALPROIC ACID
     Indication: HIV-ASSOCIATED NEUROCOGNITIVE DISORDER
     Dosage: 200 MG, TID
  9. QUETIAPINE. [Concomitant]
     Active Substance: QUETIAPINE
     Indication: HIV-ASSOCIATED NEUROCOGNITIVE DISORDER
     Dosage: 37.5 MG, BID
  10. NORVIR [Concomitant]
     Active Substance: RITONAVIR
     Indication: HIV INFECTION
     Dosage: 100 MG, 1D
     Dates: start: 20161116, end: 20170502

REACTIONS (2)
  - Asthma [Not Recovered/Not Resolved]
  - Chronic kidney disease [Not Recovered/Not Resolved]

NARRATIVE: CASE EVENT DATE: 20150819
